FAERS Safety Report 7985869-6 (Version None)
Quarter: 2011Q4

REPORT INFORMATION
  Report Type: 
  Country: None (occurrence: None)
  Receive Date: 20111216
  Receipt Date: 20111212
  Transmission Date: 20120403
  Serious: Yes (Hospitalization)
  Sender: FDA-Public Use
  Company Number: GB-AMGEN-GBRCT2011066180

PATIENT
  Age: 75 Year
  Sex: Female

DRUGS (9)
  1. BLINDED DENOSUMAB [Suspect]
     Indication: BREAST CANCER
     Dosage: UNK UNK, Q3WK
     Route: 058
     Dates: start: 20110602
  2. PLACEBO [Suspect]
     Indication: BREAST CANCER
     Dosage: UNK UNK, Q3WK
     Route: 058
     Dates: start: 20110602
  3. LANSOPRAZOLE [Concomitant]
     Dosage: UNK UNK, PRN
     Route: 048
     Dates: start: 20030523
  4. TAXOTERE [Concomitant]
     Dosage: UNK UNK, Q3WK
     Route: 042
     Dates: start: 20110803, end: 20110914
  5. HERCEPTIN [Concomitant]
     Dosage: UNK UNK, Q3WK
     Route: 042
     Dates: start: 20111111
  6. METOCLOPRAMIDE [Concomitant]
     Dosage: 10 MG, QD
     Route: 048
     Dates: start: 20110602
  7. DIFFLAM [Concomitant]
     Dosage: UNK UNK, PRN
     Route: 048
     Dates: start: 20110801
  8. TEMAZEPAM [Concomitant]
     Dosage: UNK UNK, PRN
     Route: 048
     Dates: start: 20110801
  9. RANITIDINE [Concomitant]
     Dosage: UNK UNK, BID
     Route: 048
     Dates: start: 20101027

REACTIONS (1)
  - FALL [None]
